FAERS Safety Report 16011841 (Version 3)
Quarter: 2019Q2

REPORT INFORMATION
  Report Type: Report from Study
  Country: TW (occurrence: TW)
  Receive Date: 20190227
  Receipt Date: 20190405
  Transmission Date: 20190711
  Serious: Yes (Death, Hospitalization)
  Sender: FDA-Public Use
  Company Number: TW-ACTELION-A-CH2018-172045

PATIENT
  Age: 57 Year
  Sex: Male

DRUGS (5)
  1. REVATIO [Suspect]
     Active Substance: SILDENAFIL CITRATE
     Indication: PULMONARY ARTERIAL HYPERTENSION
     Dosage: 20 MG, TID
     Route: 048
     Dates: start: 20160125, end: 20190324
  2. OPSUMIT [Suspect]
     Active Substance: MACITENTAN
     Indication: PULMONARY ARTERIAL HYPERTENSION
     Dosage: 10 MG, QD
     Route: 048
     Dates: start: 20160125, end: 20190324
  3. REMODULIN [Suspect]
     Active Substance: TREPROSTINIL
     Indication: PULMONARY ARTERIAL HYPERTENSION
     Dosage: 40 ML, QD
     Route: 065
     Dates: start: 20160125, end: 20190324
  4. FUROSEMIDE. [Concomitant]
     Active Substance: FUROSEMIDE
     Dosage: 40 MG, BID
     Dates: start: 20160125, end: 20190324
  5. FAMOTIDINE. [Concomitant]
     Active Substance: FAMOTIDINE
     Dosage: 20 MG, QD
     Dates: start: 20160125

REACTIONS (11)
  - Gingivitis [Not Recovered/Not Resolved]
  - Respiratory distress [Unknown]
  - Acute respiratory distress syndrome [Fatal]
  - Infection [Fatal]
  - Tachypnoea [Unknown]
  - Acute kidney injury [Fatal]
  - Somnolence [Unknown]
  - Pneumonia [Fatal]
  - Pyrexia [Unknown]
  - Chronic obstructive pulmonary disease [Fatal]
  - Dental operation [Unknown]

NARRATIVE: CASE EVENT DATE: 20180508
